FAERS Safety Report 5632081-1 (Version None)
Quarter: 2008Q1

REPORT INFORMATION
  Report Type: 
  Country: None (occurrence: None)
  Receive Date: 20080220
  Receipt Date: 20080213
  Transmission Date: 20080703
  Serious: Yes (Hospitalization)
  Sender: FDA-Public Use
  Company Number: B0498468A

PATIENT
  Age: 78 Year
  Sex: Female
  Weight: 39 kg

DRUGS (10)
  1. VALTREX [Suspect]
     Indication: HERPES ZOSTER
     Dosage: 500MG TWICE PER DAY
     Route: 048
     Dates: start: 20071201, end: 20071203
  2. ALLOZYM [Concomitant]
     Dosage: 50MG TWICE PER DAY
     Route: 048
     Dates: end: 20071203
  3. BUFFERIN [Concomitant]
     Dosage: 81MG PER DAY
     Route: 048
     Dates: end: 20071203
  4. METILDIGOXIN [Concomitant]
     Dosage: .05MG PER DAY
     Route: 048
     Dates: end: 20071203
  5. MEVALOTIN [Concomitant]
     Dosage: 5MG PER DAY
     Route: 048
     Dates: end: 20071203
  6. UNKNOWN DRUG [Concomitant]
     Indication: GASTRITIS
     Dosage: 10MG PER DAY
     Route: 048
     Dates: end: 20071203
  7. CALTAN [Concomitant]
     Route: 048
     Dates: end: 20071203
  8. RENAGEL [Concomitant]
     Dosage: 1500MG PER DAY
     Route: 048
     Dates: end: 20071203
  9. LENDORMIN [Concomitant]
     Indication: INSOMNIA
     Dosage: .125MG PER DAY
     Route: 048
     Dates: end: 20071203
  10. UNKNOWN DRUG [Concomitant]
     Dosage: 36MG PER DAY
     Route: 061
     Dates: end: 20071203

REACTIONS (5)
  - ABNORMAL BEHAVIOUR [None]
  - ALTERED STATE OF CONSCIOUSNESS [None]
  - DIZZINESS [None]
  - ENCEPHALOPATHY [None]
  - MALAISE [None]
